FAERS Safety Report 24002350 (Version 1)
Quarter: 2024Q2

REPORT INFORMATION
  Report Type: Other
  Country: BR (occurrence: BR)
  Receive Date: 20240623
  Receipt Date: 20240623
  Transmission Date: 20240716
  Serious: Yes (Hospitalization)
  Sender: FDA-Public Use
  Company Number: BR-DEXPHARM-2024-1796

PATIENT
  Age: 73 Year
  Sex: Male

DRUGS (4)
  1. OMEPRAZOLE [Suspect]
     Active Substance: DONEPEZIL HYDROCHLORIDE\OMEPRAZOLE\OMEPRAZOLE MAGNESIUM
     Dosage: 40 MG/DAY
  2. ATENOLOL [Concomitant]
     Active Substance: ATENOLOL
     Indication: Hypertension
     Dosage: 50 MG / DAY
  3. LISINOPRIL [Concomitant]
     Active Substance: LISINOPRIL
     Indication: Hypertension
     Dosage: 20MG / DAY
  4. AMLODIPINE [Concomitant]
     Active Substance: AMLODIPINE BESYLATE
     Indication: Hypertension
     Dosage: 5 MG / DAY

REACTIONS (1)
  - Gitelman^s syndrome [Recovered/Resolved]
